FAERS Safety Report 5588725-6 (Version None)
Quarter: 2008Q1

REPORT INFORMATION
  Report Type: 
  Country: None (occurrence: None)
  Receive Date: 20080111
  Receipt Date: 20080103
  Transmission Date: 20080703
  Serious: Yes (Other)
  Sender: FDA-Public Use
  Company Number: B0360522A

PATIENT
  Age: 37 Year
  Sex: Female

DRUGS (6)
  1. PAROXETINE HYDROCHLORIDE [Suspect]
     Indication: PANIC ATTACK
     Route: 048
     Dates: start: 20001213, end: 20010901
  2. PAROXETINE HYDROCHLORIDE [Suspect]
     Dosage: 10MG UNKNOWN
     Route: 065
     Dates: end: 20021101
  3. AMITRIPTYLINE HYDROCHLORIDE [Concomitant]
     Dosage: 10MG UNKNOWN
     Route: 065
     Dates: start: 20010301
  4. PROPRANOLOL [Concomitant]
     Indication: PANIC ATTACK
     Route: 065
     Dates: start: 20030301
  5. CITALOPRAM [Concomitant]
     Indication: ANXIETY
     Dosage: 10MG UNKNOWN
     Route: 065
     Dates: start: 20030401
  6. AMITRIPTYLINE HCL [Concomitant]
     Dates: start: 20010302

REACTIONS (15)
  - ABNORMAL DREAMS [None]
  - ARTHRALGIA [None]
  - CHILLS [None]
  - DEPRESSION [None]
  - DISTURBANCE IN ATTENTION [None]
  - DIZZINESS [None]
  - HYPERHIDROSIS [None]
  - MYALGIA [None]
  - PARAESTHESIA [None]
  - SLEEP DISORDER [None]
  - SUICIDAL IDEATION [None]
  - TEARFULNESS [None]
  - TENSION HEADACHE [None]
  - TREMOR [None]
  - WITHDRAWAL SYNDROME [None]
